FAERS Safety Report 5771766-3 (Version None)
Quarter: 2008Q2

REPORT INFORMATION
  Report Type: 
  Country: None (occurrence: None)
  Receive Date: 20080613
  Receipt Date: 20080602
  Transmission Date: 20081010
  Serious: Yes (Death, Hospitalization, Other)
  Sender: FDA-Public Use
  Company Number: US-ROCHE-547856

PATIENT
  Sex: Female

DRUGS (28)
  1. MYCOPHENOLATE MOFETIL [Suspect]
     Dosage: 1250 MG TWICE A DAY
     Route: 048
     Dates: start: 20070504
  2. REGULAR INSULIN [Concomitant]
     Dosage: 30 UNITS EVERY MORNING AND EVENING
  3. NPH [Concomitant]
     Dosage: 80 UNITS IN MORNING AND 70 UNITS EVENING
  4. PAXIL [Concomitant]
     Dosage: 40 MG EVERY MORNING
     Route: 048
  5. ELAVIL [Concomitant]
     Dosage: 50MG EVERY EVENING
     Route: 048
  6. TRICOR [Concomitant]
     Dosage: 145 MG EVERY EVENING
     Route: 048
  7. PRAVACHOL [Concomitant]
     Dosage: 80 MG EVERY EVENING
     Route: 048
  8. ZETIA [Concomitant]
     Dosage: 10 MG EVERY EVENING
     Route: 048
  9. NORVASC [Concomitant]
     Dosage: 10 EVERY MORNING
  10. TOPROL-XL [Concomitant]
     Dosage: 200 MG EVERY MORNING
     Route: 048
  11. TOPROL-XL [Concomitant]
     Route: 048
  12. QUININE [Concomitant]
     Dosage: 324 TWICE DAILY
  13. ASPIRIN [Concomitant]
  14. TEMAZEPAM [Concomitant]
     Dosage: 15 MG EVERY EVENING
     Route: 048
  15. FISH OIL [Concomitant]
     Dosage: 500 MG, 9 CAPS DAILY
  16. VICODIN [Concomitant]
     Dosage: 500 AS NEEDED
  17. VICODIN [Concomitant]
     Dosage: 500 AS NEEDED
  18. IMODIUM [Concomitant]
     Dosage: 1-2 TIMES DAILY
  19. TUMS EX [Concomitant]
     Dosage: 7 TABLETS DAILY
  20. HYDRALAZINE HCL [Concomitant]
     Dosage: 100 THREE TIMES PER DAY
  21. DAPSONE [Concomitant]
     Dosage: 100 ONCE DAILY
  22. SENOKOT [Concomitant]
     Dosage: ONE TABLET TWICE DAILY
  23. SENOKOT [Concomitant]
  24. PEPCID [Concomitant]
     Dosage: 20 MG TWICE DAILY
     Route: 048
  25. PROGRAF [Concomitant]
     Dosage: 1 TWICE DAILY
  26. REGLAN [Concomitant]
     Dosage: 10 THREE TIMES A DAY
  27. ULTRAM [Concomitant]
     Dosage: 50 EVERY 6 HOURS
  28. VALTREX [Concomitant]
     Dosage: 500  ONCE DAILY

REACTIONS (7)
  - BACTERAEMIA [None]
  - DEATH [None]
  - IMPAIRED HEALING [None]
  - PAPILLARY THYROID CANCER [None]
  - PNEUMONIA [None]
  - THYROID NEOPLASM [None]
  - URINARY TRACT INFECTION [None]
